FAERS Safety Report 8267609-9 (Version None)
Quarter: 2012Q2

REPORT INFORMATION
  Report Type: 
  Country: None (occurrence: None)
  Receive Date: 20120409
  Receipt Date: 20120403
  Transmission Date: 20120825
  Serious: Yes (Hospitalization)
  Sender: FDA-Public Use
  Company Number: US-JNJFOC-20120401917

PATIENT
  Sex: Male

DRUGS (1)
  1. STELARA [Suspect]
     Indication: PSORIASIS
     Dosage: ADVERSE EVENT OCCURRED AFTER THE PATIENT RECEIVED HIS SECOND DOSE ON 23-MAR-2012
     Route: 058
     Dates: end: 20120323

REACTIONS (1)
  - GOUT [None]
